FAERS Safety Report 7562900-3 (Version None)
Quarter: 2011Q2

REPORT INFORMATION
  Report Type: 
  Country: None (occurrence: None)
  Receive Date: 20110622
  Receipt Date: 20110615
  Transmission Date: 20111010
  Serious: Yes (Other)
  Sender: FDA-Public Use
  Company Number: US-ROCHE-782744

PATIENT
  Sex: Female

DRUGS (5)
  1. ACCUTANE [Suspect]
     Indication: ACNE
     Route: 065
     Dates: start: 19970101, end: 19980101
  2. ACCUTANE [Suspect]
     Route: 065
     Dates: start: 20010101, end: 20020101
  3. CLARAVIS [Suspect]
     Indication: ACNE
     Route: 065
     Dates: start: 20070101, end: 20080101
  4. AMNESTEEM [Suspect]
     Indication: ACNE
     Route: 065
     Dates: start: 20040101, end: 20040101
  5. SOTRET [Suspect]
     Indication: ACNE
     Route: 065

REACTIONS (2)
  - INFLAMMATORY BOWEL DISEASE [None]
  - ANXIETY [None]
